FAERS Safety Report 18061878 (Version 9)
Quarter: 2024Q3

REPORT INFORMATION
  Report Type: Report from Study
  Country: US (occurrence: US)
  Receive Date: 20200723
  Receipt Date: 20240918
  Transmission Date: 20241017
  Serious: Yes (Hospitalization, Other)
  Sender: NOVARTIS
  Company Number: NVSC2020US206449

PATIENT
  Age: 75 Year
  Sex: Male

DRUGS (1)
  1. ENTRESTO [Suspect]
     Active Substance: SACUBITRIL\VALSARTAN
     Indication: Product used for unknown indication
     Dosage: UNK
     Route: 065

REACTIONS (7)
  - Cerebrovascular accident [Unknown]
  - Arterial occlusive disease [Unknown]
  - Carotid artery disease [Unknown]
  - Deafness [Unknown]
  - Speech disorder [Unknown]
  - Slow speech [Unknown]
  - Confusional state [Unknown]

NARRATIVE: CASE EVENT DATE: 20190201
